FAERS Safety Report 25108840 (Version 2)
Quarter: 2025Q2

REPORT INFORMATION
  Report Type: Other
  Country: DE (occurrence: DE)
  Receive Date: 20250322
  Receipt Date: 20250523
  Transmission Date: 20250716
  Serious: Yes (Hospitalization)
  Sender: ANI
  Company Number: DE-ANIPHARMA-016032

PATIENT
  Sex: Male

DRUGS (36)
  1. OXCARBAZEPINE [Suspect]
     Active Substance: OXCARBAZEPINE
     Indication: Status epilepticus
  2. PHENYTOIN [Suspect]
     Active Substance: PHENYTOIN
     Indication: Status epilepticus
  3. VALPROIC ACID [Suspect]
     Active Substance: VALPROIC ACID
     Indication: Status epilepticus
  4. LEVETIRACETAM [Concomitant]
     Active Substance: LEVETIRACETAM
     Indication: Status epilepticus
  5. LAMOTRIGINE [Concomitant]
     Active Substance: LAMOTRIGINE
     Indication: Status epilepticus
  6. LACOSAMIDE [Concomitant]
     Active Substance: LACOSAMIDE
     Indication: Status epilepticus
  7. CLOBAZAM [Concomitant]
     Active Substance: CLOBAZAM
     Indication: Status epilepticus
  8. CANNABIS SATIVA SUBSP. INDICA TOP [Concomitant]
     Active Substance: CANNABIS SATIVA SUBSP. INDICA TOP
     Indication: Status epilepticus
  9. PERAMPANEL [Concomitant]
     Active Substance: PERAMPANEL
     Indication: Status epilepticus
  10. BRIVARACETAM [Concomitant]
     Active Substance: BRIVARACETAM
     Indication: Status epilepticus
  11. LORAZEPAM [Concomitant]
     Active Substance: LORAZEPAM
     Indication: Postictal paralysis
  12. PREDNISONE [Concomitant]
     Active Substance: PREDNISONE
     Indication: Status epilepticus
  13. AZATHIOPRINE [Concomitant]
     Active Substance: AZATHIOPRINE
     Indication: Status epilepticus
  14. METHOTREXATE [Concomitant]
     Active Substance: METHOTREXATE
     Indication: Status epilepticus
  15. MYCOPHENOLATE MOFETIL [Concomitant]
     Active Substance: MYCOPHENOLATE MOFETIL
     Indication: Status epilepticus
  16. HUMAN IMMUNOGLOBULIN G [Concomitant]
     Active Substance: HUMAN IMMUNOGLOBULIN G
     Indication: Status epilepticus
  17. ADALIMUMAB [Concomitant]
     Active Substance: ADALIMUMAB
     Indication: Status epilepticus
  18. RITUXIMAB [Concomitant]
     Active Substance: RITUXIMAB
     Indication: Status epilepticus
  19. CENOBAMATE [Concomitant]
     Active Substance: CENOBAMATE
     Indication: Status epilepticus
  20. VALPROIC ACID [Suspect]
     Active Substance: VALPROIC ACID
     Indication: Rasmussen encephalitis
  21. OXCARBAZEPINE [Suspect]
     Active Substance: OXCARBAZEPINE
     Indication: Rasmussen encephalitis
  22. LEVETIRACETAM [Concomitant]
     Active Substance: LEVETIRACETAM
     Indication: Rasmussen encephalitis
  23. LAMOTRIGINE [Concomitant]
     Active Substance: LAMOTRIGINE
     Indication: Rasmussen encephalitis
  24. LACOSAMIDE [Concomitant]
     Active Substance: LACOSAMIDE
     Indication: Rasmussen encephalitis
  25. CLOBAZAM [Concomitant]
     Active Substance: CLOBAZAM
     Indication: Rasmussen encephalitis
  26. CANNABIS SATIVA SUBSP. INDICA TOP [Concomitant]
     Active Substance: CANNABIS SATIVA SUBSP. INDICA TOP
     Indication: Rasmussen encephalitis
  27. PERAMPANEL [Concomitant]
     Active Substance: PERAMPANEL
     Indication: Rasmussen encephalitis
  28. BRIVARACETAM [Concomitant]
     Active Substance: BRIVARACETAM
     Indication: Rasmussen encephalitis
  29. PREDNISONE [Concomitant]
     Active Substance: PREDNISONE
     Indication: Rasmussen encephalitis
  30. AZATHIOPRINE [Concomitant]
     Active Substance: AZATHIOPRINE
     Indication: Rasmussen encephalitis
  31. METHOTREXATE [Concomitant]
     Active Substance: METHOTREXATE
     Indication: Rasmussen encephalitis
  32. MYCOPHENOLATE MOFETIL [Concomitant]
     Active Substance: MYCOPHENOLATE MOFETIL
     Indication: Rasmussen encephalitis
  33. ADALIMUMAB [Concomitant]
     Active Substance: ADALIMUMAB
     Indication: Rasmussen encephalitis
  34. RITUXIMAB [Concomitant]
     Active Substance: RITUXIMAB
     Indication: Rasmussen encephalitis
  35. CENOBAMATE [Concomitant]
     Active Substance: CENOBAMATE
     Indication: Rasmussen encephalitis
  36. HUMAN IMMUNOGLOBULIN G [Concomitant]
     Active Substance: HUMAN IMMUNOGLOBULIN G
     Indication: Rasmussen encephalitis

REACTIONS (3)
  - Drug ineffective [Unknown]
  - Ataxia [Unknown]
  - Hyperammonaemia [Unknown]
